FAERS Safety Report 12870104 (Version 1)
Quarter: 2016Q4

REPORT INFORMATION
  Report Type: Spontaneous
  Country: US (occurrence: US)
  Receive Date: 20161021
  Receipt Date: 20161021
  Transmission Date: 20170207
  Serious: Yes (Other)
  Sender: FDA-Public Use
  Company Number: US-PFIZER INC-2016489758

PATIENT
  Age: 48 Year
  Sex: Female

DRUGS (3)
  1. BUSPAR [Concomitant]
     Active Substance: BUSPIRONE HYDROCHLORIDE
     Indication: NERVOUSNESS
     Dosage: 10 MG, AS NEEDED
     Route: 048
     Dates: start: 199501
  2. BUSPAR [Concomitant]
     Active Substance: BUSPIRONE HYDROCHLORIDE
     Indication: EMOTIONAL DISORDER
  3. CHANTIX [Suspect]
     Active Substance: VARENICLINE TARTRATE
     Indication: SMOKING CESSATION THERAPY
     Dosage: 1 MG, STARTER PAK
     Route: 048
     Dates: start: 200302, end: 200302

REACTIONS (4)
  - Nightmare [Recovered/Resolved]
  - Angiopathy [Unknown]
  - Abnormal dreams [Recovered/Resolved]
  - Weight decreased [Unknown]

NARRATIVE: CASE EVENT DATE: 200302
